FAERS Safety Report 5595425-5 (Version None)
Quarter: 2008Q1

REPORT INFORMATION
  Report Type: 
  Country: None (occurrence: None)
  Receive Date: 20080118
  Receipt Date: 20080110
  Transmission Date: 20080703
  Serious: Yes (Hospitalization)
  Sender: FDA-Public Use
  Company Number: FR-NOVOPROD-270948

PATIENT
  Age: 81 Year
  Sex: Male

DRUGS (6)
  1. NOVONORM [Suspect]
     Indication: TYPE 2 DIABETES MELLITUS
     Dosage: 1.5 MG, QD
     Route: 048
     Dates: start: 20070719, end: 20071115
  2. LASILIX                            /00032601/ [Concomitant]
  3. COVERSYL                           /00790701/ [Concomitant]
  4. ZYLORIC                            /00003301/ [Concomitant]
  5. TAMSULOSIN HCL [Concomitant]
  6. PREVISCAN                          /00261401/ [Concomitant]

REACTIONS (1)
  - PRURITUS [None]
